FAERS Safety Report 5873626-6 (Version None)
Quarter: 2008Q3

REPORT INFORMATION
  Report Type: 
  Country: None (occurrence: None)
  Receive Date: 20080908
  Receipt Date: 20080829
  Transmission Date: 20090109
  Serious: Yes (Hospitalization)
  Sender: FDA-Public Use
  Company Number: A0695003A

PATIENT
  Age: 58 Year
  Sex: Male
  Weight: 88.6 kg

DRUGS (7)
  1. AVANDIA [Suspect]
     Dosage: 4MG PER DAY
     Route: 048
     Dates: start: 19990101, end: 20070501
  2. HUMALOG [Concomitant]
     Dates: start: 19800101
  3. LANTUS [Concomitant]
     Dates: start: 19800101
  4. BEXTRA [Concomitant]
     Dates: start: 20020101, end: 20050101
  5. SERTRALINE [Concomitant]
     Dates: start: 20000101
  6. NEPHROCAPS [Concomitant]
  7. METOCLOPRAMIDE [Concomitant]

REACTIONS (3)
  - ATRIAL FIBRILLATION [None]
  - MYOCARDIAL INFARCTION [None]
  - SUPRAVENTRICULAR TACHYCARDIA [None]
